FAERS Safety Report 13041130 (Version 1)
Quarter: 2016Q4

REPORT INFORMATION
  Report Type: Spontaneous
  Country: US (occurrence: US)
  Receive Date: 20161219
  Receipt Date: 20161219
  Transmission Date: 20170207
  Serious: No
  Sender: FDA-Public Use
  Company Number: US-ROCHE-1095951

PATIENT
  Age: 33 Year
  Sex: Male

DRUGS (2)
  1. ZELBORAF [Suspect]
     Active Substance: VEMURAFENIB
     Indication: METASTATIC MALIGNANT MELANOMA
     Dosage: 4 TAB TWICE DAILY
     Route: 048
  2. ZELBORAF [Suspect]
     Active Substance: VEMURAFENIB
     Dosage: 3 TAB TWICE DAILY
     Route: 048
     Dates: start: 20120717

REACTIONS (2)
  - Accidental overdose [Unknown]
  - Renal impairment [Unknown]

NARRATIVE: CASE EVENT DATE: 20120801
